FAERS Safety Report 13335216 (Version 1)
Quarter: 2017Q1

REPORT INFORMATION
  Report Type: Spontaneous
  Country: US (occurrence: US)
  Receive Date: 20170314
  Receipt Date: 20170314
  Transmission Date: 20170428
  Serious: No
  Sender: FDA-Public Use
  Company Number: US-GALDERMA-US16007671

PATIENT
  Age: 78 Year
  Sex: Female

DRUGS (22)
  1. LIQUID CALCIUM WITH VITAMIN D3 [Concomitant]
     Route: 048
  2. VITAMIN B12 [Concomitant]
     Active Substance: CYANOCOBALAMIN
  3. RESTASIS [Concomitant]
     Active Substance: CYCLOSPORINE
     Indication: DRY EYE
     Dosage: 1 DROP
     Route: 047
  4. DR. ECKSTEIN AZULEN CLEANSING OIL FROM GERMANY [Concomitant]
     Indication: THERAPEUTIC SKIN CARE TOPICAL
     Route: 061
  5. UNSPECIFIED INHALER [Concomitant]
     Active Substance: UNSPECIFIED INGREDIENT
     Indication: WHEEZING
  6. TRI-LUMA [Suspect]
     Active Substance: FLUOCINOLONE ACETONIDE\HYDROQUINONE\TRETINOIN
     Indication: SOLAR LENTIGO
     Dosage: 0.01%/4%/0.05%
     Route: 061
     Dates: start: 201610
  7. DR. ECKSTEIN MAKE-UP FROM GERMANY [Concomitant]
     Indication: THERAPEUTIC SKIN CARE TOPICAL
     Route: 061
  8. UNSPECIFIED SUNSCREEN [Concomitant]
     Indication: PROPHYLAXIS AGAINST SOLAR RADIATION
     Route: 061
  9. CETIRIZINE HCL [Concomitant]
     Active Substance: CETIRIZINE HYDROCHLORIDE
     Dosage: 10MG
     Route: 048
  10. MAGNESIUM [Concomitant]
     Active Substance: MAGNESIUM
     Dosage: 1 TEASPOON
     Route: 048
  11. AUGMENTIN [Concomitant]
     Active Substance: AMOXICILLIN\CLAVULANATE POTASSIUM
     Dosage: 1-2
  12. ALIGN [Concomitant]
     Active Substance: BIFIDOBACTERIUM LONGUM SUBSP. INFANTIS
     Dosage: 4MG
     Route: 048
     Dates: start: 2013
  13. BENICAR HCT [Concomitant]
     Active Substance: HYDROCHLOROTHIAZIDE\OLMESARTAN MEDOXOMIL
     Dosage: 12.5 MG
     Dates: start: 2000
  14. BROMELAIN [Concomitant]
     Active Substance: BROMELAINS
     Dosage: 1-2
  15. POTASSIUM CLEAR [Concomitant]
     Dosage: 10MEQ
     Route: 048
     Dates: start: 2000
  16. QVAR [Concomitant]
     Active Substance: BECLOMETHASONE DIPROPIONATE
     Dosage: 1 PUFF
  17. COQ10 [Concomitant]
     Active Substance: UBIDECARENONE
  18. VITAMIN B COMPLEX [Concomitant]
     Active Substance: CYANOCOBALAMIN\DEXPANTHENOL\NIACINAMIDE\PYRIDOXINE HYDROCHLORIDE\RIBOFLAVIN 5^-PHOSPHATE SODIUM\THIAMINE HYDROCHLORIDE\VITAMIN B COMPLEX
     Dosage: 1 TABLESPOON
     Route: 048
  19. TRI-LUMA [Suspect]
     Active Substance: FLUOCINOLONE ACETONIDE\HYDROQUINONE\TRETINOIN
     Dosage: 0.01%/4%/0.05%
     Route: 061
     Dates: start: 2001
  20. UNSPECIFIED INHALER [Concomitant]
     Active Substance: UNSPECIFIED INGREDIENT
     Indication: ASTHMA
  21. RANITIDINE. [Concomitant]
     Active Substance: RANITIDINE
     Dosage: 150MG
     Dates: start: 2015
  22. PANTETHINE [Concomitant]
     Active Substance: PANTETHINE

REACTIONS (3)
  - Hot flush [Recovered/Resolved]
  - Erythema [Recovered/Resolved]
  - Intentional product misuse [Recovered/Resolved]

NARRATIVE: CASE EVENT DATE: 201610
